FAERS Safety Report 4416516-8 (Version None)
Quarter: 2004Q3

REPORT INFORMATION
  Report Type: 
  Country: None (occurrence: None)
  Receive Date: 20040802
  Receipt Date: 20040720
  Transmission Date: 20050211
  Serious: Yes (Life-Threatening, Other)
  Sender: FDA-Public Use
  Company Number: 2004041732

PATIENT
  Age: 87 Year
  Sex: Female

DRUGS (4)
  1. LIPITOR [Suspect]
     Indication: HYPERLIPIDAEMIA
     Dosage: 10 MG (1 IN 1 D), ORAL
     Route: 048
     Dates: start: 20040601, end: 20040608
  2. CLOTIAZEPAM [Concomitant]
  3. BIOFERMIN (BACILLUS SUBTILIS, LACTOBACILLUS ACIDOPHILUS, STREPTOCOCCUS [Concomitant]
  4. FAMOTIDINE [Concomitant]

REACTIONS (2)
  - AGRANULOCYTOSIS [None]
  - URINARY TRACT INFECTION [None]
